FAERS Safety Report 15932313 (Version 2)
Quarter: 2019Q2

REPORT INFORMATION
  Report Type: Spontaneous
  Country: US (occurrence: US)
  Receive Date: 20190207
  Receipt Date: 20190423
  Transmission Date: 20190711
  Serious: No
  Sender: FDA-Public Use
  Company Number: US-PFIZER INC-2019048858

PATIENT
  Age: 69 Year
  Sex: Male

DRUGS (2)
  1. GENTAMICIN SULFATE. [Suspect]
     Active Substance: GENTAMICIN SULFATE
     Indication: LUNG DISORDER
     Dosage: UNK, 2X/DAY ((80 MG PER 2ML) TWICE A DAY USING MY NEBULIZER)
  2. GENTAMICIN SULFATE. [Suspect]
     Active Substance: GENTAMICIN SULFATE
     Indication: LUNG INFECTION PSEUDOMONAL

REACTIONS (1)
  - Wrong technique in product usage process [Unknown]
